FAERS Safety Report 9286311 (Version 2)
Quarter: 2013Q3

REPORT INFORMATION
  Report Type: Spontaneous
  Country: JP (occurrence: None)
  Receive Date: 20130508
  Receipt Date: 20130708
  Transmission Date: 20140515
  Serious: Yes (Other)
  Sender: FDA-Public Use
  Company Number: TCI2013A02453

PATIENT
  Age: 75 Year
  Sex: 0

DRUGS (1)
  1. NESINA [Suspect]
     Indication: DIABETES MELLITUS
     Dosage: (25 MG, 1 IN 1 D)
     Route: 048
     Dates: start: 201212, end: 201304

REACTIONS (2)
  - Pancreatitis acute [None]
  - Hyperamylasaemia [None]
